FAERS Safety Report 7095596-8 (Version None)
Quarter: 2010Q4

REPORT INFORMATION
  Report Type: 
  Country: None (occurrence: None)
  Receive Date: 20101111
  Receipt Date: 20101109
  Transmission Date: 20110411
  Serious: Yes (Other)
  Sender: FDA-Public Use
  Company Number: BE-PFIZER INC-2010144294

PATIENT
  Sex: Female

DRUGS (1)
  1. SOMAVERT [Suspect]

REACTIONS (4)
  - AGGRESSION [None]
  - AMNESIA [None]
  - DISORIENTATION [None]
  - MOOD ALTERED [None]
